FAERS Safety Report 9481997 (Version 2)
Quarter: 2013Q4

REPORT INFORMATION
  Report Type: Report from Study
  Country: NL (occurrence: NL)
  Receive Date: 20130828
  Receipt Date: 20131001
  Transmission Date: 20140711
  Serious: Yes (Hospitalization)
  Sender: FDA-Public Use
  Company Number: NL-CELGENEUS-114-21660-13081880

PATIENT
  Age: 58 Year
  Sex: Male
  Weight: 59 kg

DRUGS (8)
  1. ABRAXANE [Suspect]
     Indication: PANCREATIC CARCINOMA
     Route: 041
     Dates: start: 20130626
  2. ABRAXANE [Suspect]
     Route: 041
     Dates: start: 20130724, end: 20130904
  3. GEMCITABINE [Suspect]
     Indication: PANCREATIC CARCINOMA
     Route: 041
  4. MEBEVERINE [Concomitant]
     Indication: DIARRHOEA
     Route: 048
  5. LOPERAMIDE [Concomitant]
     Indication: DIARRHOEA
     Dosage: 4 MILLIGRAM
     Route: 048
  6. CREON [Concomitant]
     Indication: DIARRHOEA
     Route: 048
  7. INSULIN [Concomitant]
     Indication: DIABETES MELLITUS
     Route: 058
  8. OMEPRAZOLE [Concomitant]
     Indication: GASTRIC ULCER
     Route: 048

REACTIONS (2)
  - General physical health deterioration [Unknown]
  - Biliary tract disorder [Recovered/Resolved]
